FAERS Safety Report 12649725 (Version 1)
Quarter: 2016Q3

REPORT INFORMATION
  Report Type: Spontaneous
  Country: US (occurrence: US)
  Receive Date: 20160812
  Receipt Date: 20160812
  Transmission Date: 20161109
  Serious: No
  Sender: FDA-Public Use
  Company Number: US-IMPAX LABORATORIES, INC-2016-IPXL-00253

PATIENT
  Sex: Female
  Weight: 79 kg

DRUGS (3)
  1. MIXED AMPHETAMINE SALTS [Suspect]
     Active Substance: AMPHETAMINE ASPARTATE\AMPHETAMINE SULFATE\DEXTROAMPHETAMINE SACCHARATE\DEXTROAMPHETAMINE SULFATE
     Dosage: 30 MG,(1/2 PILL PER AFTERNOON)
     Route: 048
     Dates: end: 20151218
  2. LOESTRIN-FE [Concomitant]
     Indication: CONTRACEPTION
     Dosage: 1/20 (24) - 75(4) MG-MCG-MG,  1 /DAY
     Route: 048
  3. MIXED AMPHETAMINE SALTS [Suspect]
     Active Substance: AMPHETAMINE ASPARTATE\AMPHETAMINE SULFATE\DEXTROAMPHETAMINE SACCHARATE\DEXTROAMPHETAMINE SULFATE
     Indication: ATTENTION DEFICIT/HYPERACTIVITY DISORDER
     Dosage: 30 MG, MORNING
     Route: 048
     Dates: end: 20151218

REACTIONS (2)
  - Drug effect incomplete [Recovered/Resolved]
  - Drug effect delayed [Recovered/Resolved]
